FAERS Safety Report 24634165 (Version 4)
Quarter: 2024Q4

REPORT INFORMATION
  Report Type: Report from Study
  Country: US (occurrence: US)
  Receive Date: 20241119
  Receipt Date: 20241227
  Transmission Date: 20250115
  Serious: No
  Sender: ACADIA PHARMACEUTICALS
  Company Number: US-ACADIA PHARMACEUTICALS INC.-ACA-2024-TRF-007346

PATIENT
  Sex: Female

DRUGS (2)
  1. DAYBUE [Suspect]
     Active Substance: TROFINETIDE
     Indication: Rett syndrome
     Dosage: 25 MILLILITER, BID
     Route: 048
     Dates: start: 20241023
  2. DAYBUE [Suspect]
     Active Substance: TROFINETIDE
     Dosage: UNK
     Route: 065

REACTIONS (7)
  - Bacterial infection [Not Recovered/Not Resolved]
  - Retching [Not Recovered/Not Resolved]
  - Faeces soft [Not Recovered/Not Resolved]
  - Flatulence [Not Recovered/Not Resolved]
  - Vaginal haemorrhage [Unknown]
  - Nasal congestion [Not Recovered/Not Resolved]
  - Vomiting [Recovered/Resolved]
